FAERS Safety Report 8879158 (Version 1)
Quarter: 2012Q4

REPORT INFORMATION
  Report Type: Spontaneous
  Country: US (occurrence: None)
  Receive Date: 20121026
  Receipt Date: 20121026
  Transmission Date: 20130627
  Serious: Yes (Other)
  Sender: FDA-Public Use
  Company Number: None

PATIENT
  Age: 34 Year
  Sex: Female
  Weight: 170.1 kg

DRUGS (2)
  1. MIRENA IUD [Suspect]
     Indication: BIRTH CONTROL
     Dosage: Intra-uterine
     Route: 015
     Dates: start: 20030101, end: 20080820
  2. MIRENA IUD [Suspect]
     Indication: BLEEDING MENSTRUAL HEAVY
     Dosage: Intra-uterine
     Route: 015
     Dates: start: 20030101, end: 20080820

REACTIONS (5)
  - Cyst [None]
  - Pain [None]
  - Umbilical hernia [None]
  - Amenorrhoea [None]
  - Device dislocation [None]
